FAERS Safety Report 10128451 (Version 1)
Quarter: 2014Q2

REPORT INFORMATION
  Report Type: Report from Study
  Country: ES (occurrence: ES)
  Receive Date: 20140428
  Receipt Date: 20140428
  Transmission Date: 20141212
  Serious: Yes (Other)
  Sender: FDA-Public Use
  Company Number: ES-ROCHE-1387596

PATIENT
  Age: 67 Year
  Sex: Male
  Weight: 90 kg

DRUGS (9)
  1. PEG-INTERFERON ALFA 2A [Suspect]
     Indication: CHRONIC HEPATITIS C
     Route: 058
     Dates: start: 20130125, end: 20131223
  2. RIBAVIRINA [Suspect]
     Indication: CHRONIC HEPATITIS C
     Route: 048
     Dates: start: 20130125, end: 20131223
  3. VICTRELIS [Suspect]
     Indication: CHRONIC HEPATITIS C
     Route: 048
     Dates: start: 20130218, end: 20131223
  4. PARACETAMOL [Concomitant]
     Dosage: AS REQUIRED
     Route: 048
     Dates: start: 20130125
  5. TORASEMIDA [Concomitant]
     Indication: HYPERTENSION
     Route: 048
     Dates: start: 20130121
  6. OMEPRAZOL [Concomitant]
     Route: 048
     Dates: start: 20130115
  7. LORAZEPAM [Concomitant]
     Route: 048
     Dates: start: 20130121
  8. IXIA [Concomitant]
     Indication: HYPERTENSION
     Route: 048
     Dates: start: 20130121
  9. DILTIAZEM [Concomitant]
     Indication: HYPERTENSION
     Route: 048
     Dates: start: 20130121

REACTIONS (3)
  - Ageusia [Not Recovered/Not Resolved]
  - Weight decreased [Recovering/Resolving]
  - Asthenia [Recovering/Resolving]
